FAERS Safety Report 4390810-1 (Version None)
Quarter: 2004Q3

REPORT INFORMATION
  Report Type: 
  Country: None (occurrence: None)
  Receive Date: 20040706
  Receipt Date: 20040706
  Transmission Date: 20050211
  Serious: Yes (Death)
  Sender: FDA-Public Use
  Company Number: None

PATIENT
  Sex: Female

DRUGS (12)
  1. ADRIAMYCIN PFS [Suspect]
     Indication: BREAST CANCER
     Dosage: 60 MG/M2 X 3, ONE DOSE /TOTAL DOSE 336 MG
     Dates: start: 20000609
  2. ADRIAMYCIN PFS [Suspect]
     Indication: BREAST CANCER
     Dosage: 60 MG/M2 X 3, ONE DOSE /TOTAL DOSE 336 MG
     Dates: start: 20000628
  3. ADRIAMYCIN PFS [Suspect]
     Indication: BREAST CANCER
     Dosage: 60 MG/M2 X 3, ONE DOSE /TOTAL DOSE 336 MG
     Dates: start: 20000727
  4. ADRIAMYCIN PFS [Suspect]
     Indication: BREAST CANCER
     Dosage: 60 MG/M2 X 3, ONE DOSE /TOTAL DOSE 336 MG
     Dates: start: 20030518
  5. CYCLOPHYPHAMIDE [Concomitant]
  6. LORAZEPAM [Concomitant]
  7. COLASETRON [Concomitant]
  8. COMPAZINE [Concomitant]
  9. DECADRON [Concomitant]
  10. VIT E [Concomitant]
  11. VIT B6 [Concomitant]
  12. M.V.I. [Concomitant]

REACTIONS (8)
  - BLOOD PRESSURE DECREASED [None]
  - CARDIAC DISORDER [None]
  - DRUG TOXICITY [None]
  - DYSPNOEA [None]
  - EJECTION FRACTION DECREASED [None]
  - PERICARDIAL EFFUSION [None]
  - POST PROCEDURAL COMPLICATION [None]
  - PROCEDURAL HYPOTENSION [None]
